FAERS Safety Report 5009127-7 (Version None)
Quarter: 2006Q2

REPORT INFORMATION
  Report Type: 
  Country: None (occurrence: None)
  Receive Date: 20060523
  Receipt Date: 20060518
  Transmission Date: 20061013
  Serious: Yes (Death, Life-Threatening, Disabling, Other)
  Sender: FDA-Public Use
  Company Number: CA-MERCK-0605CAN00120

PATIENT
  Age: 89 Year
  Sex: Male
  Weight: 68 kg

DRUGS (2)
  1. FOSAMAX [Suspect]
     Indication: OSTEOPOROSIS
     Route: 048
     Dates: start: 20060307, end: 20060508
  2. CHOLECALCIFEROL [Concomitant]
     Route: 048

REACTIONS (3)
  - FALL [None]
  - MYOCARDIAL INFARCTION [None]
  - SUDDEN DEATH [None]
